FAERS Safety Report 14939343 (Version 2)
Quarter: 2018Q3

REPORT INFORMATION
  Report Type: Report from Study
  Country: US (occurrence: US)
  Receive Date: 20180525
  Receipt Date: 20180529
  Transmission Date: 20181010
  Serious: Yes (Death)
  Sender: FDA-Public Use
  Company Number: US-SA-2018SA132070

PATIENT
  Age: 69 Year
  Sex: Female

DRUGS (13)
  1. BLINDED ALIROCUMAB [Suspect]
     Active Substance: ALIROCUMAB
     Indication: HYPERCHOLESTEROLAEMIA
     Dosage: 1 ML,QOW
     Route: 058
     Dates: start: 20170803, end: 20170928
  2. BLINDED PLACEBO [Suspect]
     Active Substance: INVESTIGATIONAL PRODUCT
     Indication: HYPERCHOLESTEROLAEMIA
     Dosage: 1 ML,QOW
     Route: 058
     Dates: start: 20170803, end: 20170928
  3. COLACE [Concomitant]
     Active Substance: DOCUSATE SODIUM
     Indication: CONSTIPATION
     Dosage: 100 MG,BID
     Route: 048
     Dates: start: 2016
  4. CLOPIDOGREL [Concomitant]
     Active Substance: CLOPIDOGREL BISULFATE
     Indication: CAROTID ENDARTERECTOMY
     Dosage: 75 MG,QD
     Route: 048
     Dates: start: 201607
  5. BLINDED ALIROCUMAB [Suspect]
     Active Substance: ALIROCUMAB
     Indication: HYPERCHOLESTEROLAEMIA
     Dosage: 1 ML,QOW
     Route: 058
     Dates: start: 20170803, end: 20170928
  6. BLINDED NO STUDY DRUG GIVEN [Suspect]
     Active Substance: INVESTIGATIONAL PRODUCT
     Indication: HYPERCHOLESTEROLAEMIA
     Dosage: 1 ML,QOW
     Route: 058
     Dates: start: 20170803, end: 20170928
  7. CARVEDILOL. [Concomitant]
     Active Substance: CARVEDILOL
     Indication: MYOCARDIAL INFARCTION
     Dosage: 3.125 MG,BID
     Route: 048
     Dates: start: 201608
  8. PANTOPRAZOLE [Concomitant]
     Active Substance: PANTOPRAZOLE
     Indication: GASTROOESOPHAGEAL REFLUX DISEASE
     Dosage: 40 MG,BID
     Route: 048
     Dates: start: 2016
  9. BLINDED RED YEAST RICE [Suspect]
     Active Substance: DIETARY SUPPLEMENT
     Indication: HYPERCHOLESTEROLAEMIA
     Dosage: 1 ML,QOW
     Route: 058
     Dates: start: 20170803, end: 20170928
  10. ERGOCALCIFEROL. [Concomitant]
     Active Substance: ERGOCALCIFEROL
     Indication: VITAMIN D DEFICIENCY
     Dosage: 2000 DF,QD
     Route: 048
     Dates: start: 2016
  11. BLINDED FENOFIBRIC ACID [Suspect]
     Active Substance: FENOFIBRIC ACID
     Indication: HYPERCHOLESTEROLAEMIA
     Dosage: 1 ML,QOW
     Route: 058
     Dates: start: 20170803, end: 20170928
  12. VENLAFAXINE [Concomitant]
     Active Substance: VENLAFAXINE HYDROCHLORIDE
     Indication: DEPRESSION
     Dosage: 150 MG,QD
     Route: 048
     Dates: start: 2012
  13. BLINDED ALIROCUMAB [Suspect]
     Active Substance: ALIROCUMAB
     Indication: HYPERCHOLESTEROLAEMIA
     Dosage: 1 ML,QOW
     Route: 058
     Dates: start: 20170803, end: 20170928

REACTIONS (9)
  - Vascular stent stenosis [None]
  - Bradycardia [None]
  - Unresponsive to stimuli [None]
  - Coronary artery thrombosis [None]
  - Retroperitoneal haematoma [None]
  - Puncture site haemorrhage [None]
  - Cardio-respiratory arrest [None]
  - Hypotension [None]
  - Pupil fixed [None]

NARRATIVE: CASE EVENT DATE: 20180501
